FAERS Safety Report 7940553-X (Version None)
Quarter: 2011Q4

REPORT INFORMATION
  Report Type: 
  Country: None (occurrence: None)
  Receive Date: 20111114
  Receipt Date: 20101006
  Transmission Date: 20120403
  Serious: Yes (Hospitalization)
  Sender: FDA-Public Use
  Company Number: 2010S1001431

PATIENT
  Sex: Female

DRUGS (6)
  1. RIFAMPIN [Concomitant]
  2. ZYVOX [Concomitant]
  3. SULFAMETHOXAZOLE AND TRIMETHOPRIM [Concomitant]
  4. FLUCONAZOLE [Concomitant]
  5. CUBICIN [Suspect]
     Indication: ENDOCARDITIS
     Dosage: 1600 MG;Q24H;IV
     Route: 042
     Dates: start: 20100920, end: 20101004
  6. CUBICIN [Suspect]
     Indication: STAPHYLOCOCCAL INFECTION
     Dosage: 1600 MG;Q24H;IV
     Route: 042
     Dates: start: 20100920, end: 20101004

REACTIONS (1)
  - THROMBOCYTOPENIA [None]
